FAERS Safety Report 13462512 (Version 3)
Quarter: 2017Q2

REPORT INFORMATION
  Report Type: Report from Study
  Country: US (occurrence: US)
  Receive Date: 20170420
  Receipt Date: 20170607
  Transmission Date: 20170830
  Serious: Yes (Hospitalization)
  Sender: FDA-Public Use
  Company Number: US-GILEAD-2017-0268594

PATIENT
  Age: 71 Year
  Sex: Female

DRUGS (3)
  1. AZTREONAM LYSINE [Suspect]
     Active Substance: AZTREONAM LYSINE
     Indication: CYSTIC FIBROSIS LUNG
     Dosage: 75 MG, UNK
     Route: 055
     Dates: start: 20170223
  2. PULMOZYME [Concomitant]
     Active Substance: DORNASE ALFA
     Dosage: UNK, BID
     Dates: start: 2017
  3. PULMOZYME [Concomitant]
     Active Substance: DORNASE ALFA
     Dosage: UNK, QD
     Dates: end: 2017

REACTIONS (8)
  - Drug hypersensitivity [Unknown]
  - Dyspnoea [Unknown]
  - Product colour issue [Recovered/Resolved]
  - Vomiting [Unknown]
  - Condition aggravated [Unknown]
  - Pyrexia [Unknown]
  - Blood pressure abnormal [Unknown]
  - Unevaluable event [Unknown]

NARRATIVE: CASE EVENT DATE: 2017
